FAERS Safety Report 17823906 (Version 1)
Quarter: 2020Q2

REPORT INFORMATION
  Report Type: Spontaneous
  Country: BR (occurrence: BR)
  Receive Date: 20200526
  Receipt Date: 20200526
  Transmission Date: 20200714
  Serious: Yes (Other)
  Sender: FDA-Public Use
  Company Number: BR-BAYER-2020-073729

PATIENT
  Age: 42 Year
  Sex: Female

DRUGS (1)
  1. MIRENA [Suspect]
     Active Substance: LEVONORGESTREL
     Dosage: 20 ?G PER DAY, CONTINUOUSLY
     Route: 015

REACTIONS (5)
  - Drug ineffective [None]
  - Pregnancy with contraceptive device [None]
  - Subchorionic haematoma [None]
  - Amniorrhexis [None]
  - Abortion spontaneous [None]

NARRATIVE: CASE EVENT DATE: 2020
